FAERS Safety Report 9942219 (Version 2)
Quarter: 2014Q1

REPORT INFORMATION
  Report Type: Report from Study
  Country: US (occurrence: US)
  Receive Date: 20140303
  Receipt Date: 20140303
  Transmission Date: 20141002
  Serious: No
  Sender: FDA-Public Use
  Company Number: US-ABBVIE-11P-163-0734186-00

PATIENT
  Age: 51 Year
  Sex: Female

DRUGS (8)
  1. HUMIRA [Suspect]
     Indication: RHEUMATOID ARTHRITIS
     Route: 058
     Dates: start: 200610
  2. HUMIRA [Suspect]
  3. LEFLUNOMIDE [Concomitant]
     Indication: PRODUCT USED FOR UNKNOWN INDICATION
  4. HYDROCHLOROTHIAZIDE [Concomitant]
     Indication: HYPERTENSION
  5. AVAPRO [Concomitant]
     Indication: HYPERTENSION
  6. PREDNISONE [Concomitant]
     Indication: ARTHRALGIA
     Dosage: DAILY AS NEEDED
  7. METFORMIN [Concomitant]
     Indication: DIABETES MELLITUS
  8. CALCITONIE-SALMON NASAL SPRAY [Concomitant]
     Indication: BONE DENSITY DECREASED
     Route: 045

REACTIONS (7)
  - Pain [Not Recovered/Not Resolved]
  - Mass [Unknown]
  - Hypertension [Unknown]
  - Psoriasis [Unknown]
  - Hepatic enzyme increased [Recovered/Resolved]
  - Gastrooesophageal reflux disease [Recovered/Resolved]
  - Pterygium operation [Recovered/Resolved]
